FAERS Safety Report 4718843-3 (Version None)
Quarter: 2005Q3

REPORT INFORMATION
  Report Type: 
  Country: None (occurrence: None)
  Receive Date: 20050719
  Receipt Date: 20050701
  Transmission Date: 20060218
  Serious: Yes (Hospitalization)
  Sender: FDA-Public Use
  Company Number: 205237

PATIENT
  Age: 52 Year
  Sex: Female
  Weight: 48.5349 kg

DRUGS (8)
  1. AVONEX [Suspect]
     Indication: MULTIPLE SCLEROSIS
     Dosage: 30 UG; QW; IM
     Route: 030
     Dates: start: 20000101, end: 20040301
  2. AVONEX [Suspect]
     Indication: MULTIPLE SCLEROSIS
     Dosage: 30 UG; QW; IM
     Route: 030
     Dates: start: 20040301, end: 20040501
  3. AVONEX [Suspect]
     Indication: MULTIPLE SCLEROSIS
     Dosage: 30 UG; QW; IM
     Route: 030
     Dates: start: 20040501, end: 20040701
  4. BACLOFEN [Concomitant]
  5. VALIUM [Concomitant]
  6. PROVIGIL [Concomitant]
  7. FIORINAL [Concomitant]
  8. COPAXONE [Concomitant]

REACTIONS (15)
  - ACCIDENT [None]
  - ANKLE FRACTURE [None]
  - ARTHROPATHY [None]
  - BLOOD PRESSURE DECREASED [None]
  - BURNING SENSATION [None]
  - FALL [None]
  - HIP FRACTURE [None]
  - HOT FLUSH [None]
  - HYPERHIDROSIS [None]
  - INFLUENZA LIKE ILLNESS [None]
  - MENOPAUSE [None]
  - MUSCULOSKELETAL STIFFNESS [None]
  - OEDEMA PERIPHERAL [None]
  - PROCEDURAL PAIN [None]
  - PYREXIA [None]
